FAERS Safety Report 5055430-4 (Version None)
Quarter: 2006Q3

REPORT INFORMATION
  Report Type: 
  Country: None (occurrence: None)
  Receive Date: 20060717
  Receipt Date: 20060717
  Transmission Date: 20061208
  Serious: Yes (Hospitalization)
  Sender: FDA-Public Use
  Company Number: None

PATIENT
  Age: 76 Year
  Sex: Female
  Weight: 59.1 kg

DRUGS (9)
  1. COUMADIN [Suspect]
     Indication: CEREBROVASCULAR ACCIDENT PROPHYLAXIS
     Dosage: 1 MG ALT 2 MG DAILY [CHRONIC]
  2. ASPIRIN [Suspect]
     Indication: CEREBROVASCULAR ACCIDENT PROPHYLAXIS
     Dosage: 81 MG PO DAILY [CHRONIC]
     Route: 048
  3. AGRYLIN [Concomitant]
  4. LISINOPRIL [Concomitant]
  5. LEXAPRO [Concomitant]
  6. FOLIC ACID [Concomitant]
  7. ASPIRIN [Concomitant]
  8. VYTORIN [Concomitant]
  9. COUMADIN [Concomitant]

REACTIONS (5)
  - HAEMATEMESIS [None]
  - HAEMOPTYSIS [None]
  - INTERNATIONAL NORMALISED RATIO INCREASED [None]
  - MALLORY-WEISS SYNDROME [None]
  - MELAENA [None]
